FAERS Safety Report 21772099 (Version 1)
Quarter: 2022Q4

REPORT INFORMATION
  Report Type: Spontaneous
  Country: US (occurrence: US)
  Receive Date: 20221223
  Receipt Date: 20221223
  Transmission Date: 20230113
  Serious: No
  Sender: FDA-Public Use
  Company Number: US-CTI BIOPHARMA-2022US03078

PATIENT

DRUGS (2)
  1. VONJO [Suspect]
     Active Substance: PACRITINIB
     Indication: Myelofibrosis
     Dosage: 200 MG, BID
     Route: 048
     Dates: start: 20220831, end: 202209
  2. VONJO [Suspect]
     Active Substance: PACRITINIB
     Dosage: 100 MG, QD
     Dates: start: 202210

REACTIONS (8)
  - Dyspepsia [Unknown]
  - Transfusion [Unknown]
  - Pain [Unknown]
  - Eating disorder [Unknown]
  - Fluid intake reduced [Unknown]
  - Impaired quality of life [Unknown]
  - Splenomegaly [Unknown]
  - Endoscopy [Unknown]

NARRATIVE: CASE EVENT DATE: 20220901
